FAERS Safety Report 8382611-4 (Version None)
Quarter: 2012Q2

REPORT INFORMATION
  Report Type: 
  Country: None (occurrence: None)
  Receive Date: 20120524
  Receipt Date: 20120515
  Transmission Date: 20120825
  Serious: Yes (Hospitalization)
  Sender: FDA-Public Use
  Company Number: CN-JNJFOC-20120501562

PATIENT
  Sex: Female
  Weight: 54.5 kg

DRUGS (1)
  1. RISPERIDONE [Suspect]
     Indication: SCHIZOPHRENIA
     Route: 048
     Dates: start: 20100802, end: 20111126

REACTIONS (2)
  - HOSPITALISATION [None]
  - HYPERPROLACTINAEMIA [None]
